FAERS Safety Report 15757069 (Version 1)
Quarter: 2018Q4

REPORT INFORMATION
  Report Type: Spontaneous
  Country: CN (occurrence: CN)
  Receive Date: 20181224
  Receipt Date: 20181224
  Transmission Date: 20190205
  Serious: Yes (Death, Hospitalization)
  Sender: FDA-Public Use
  Company Number: CN-PFIZER INC-2018522899

PATIENT
  Age: 7 Year
  Sex: Male

DRUGS (2)
  1. ZYVOX [Suspect]
     Active Substance: LINEZOLID
     Indication: ABDOMINAL INFECTION
     Dosage: UNK
     Dates: start: 20181214
  2. PIPERACILLIN/SULBACTAM [Suspect]
     Active Substance: PIPERACILLIN\SULBACTAM
     Indication: ABDOMINAL INFECTION
     Dosage: UNK
     Dates: start: 20181213

REACTIONS (2)
  - Shock [Unknown]
  - Pulmonary embolism [Fatal]

NARRATIVE: CASE EVENT DATE: 20181216
